FAERS Safety Report 10053730 (Version 2)
Quarter: 2014Q2

REPORT INFORMATION
  Report Type: Report from Study
  Country: DE (occurrence: DE)
  Receive Date: 20140402
  Receipt Date: 20140415
  Transmission Date: 20141212
  Serious: Yes (Death)
  Sender: FDA-Public Use
  Company Number: DE-PFIZER INC-2014089546

PATIENT
  Age: 64 Year
  Sex: Male

DRUGS (1)
  1. AXITINIB [Suspect]
     Indication: NEOPLASM MALIGNANT
     Dosage: 2 MG, 2X/DAY (1-0-1)
     Route: 048
     Dates: start: 20130626, end: 20140225

REACTIONS (2)
  - Disease progression [Fatal]
  - Neoplasm malignant [Fatal]
